FAERS Safety Report 22006042 (Version 1)
Quarter: 2023Q1

REPORT INFORMATION
  Report Type: Spontaneous
  Country: US (occurrence: US)
  Receive Date: 20230217
  Receipt Date: 20230217
  Transmission Date: 20230417
  Serious: No
  Sender: FDA-Public Use
  Company Number: US-BRISTOL-MYERS SQUIBB COMPANY-2023-023870

PATIENT
  Age: 84 Year
  Sex: Female

DRUGS (1)
  1. LENALIDOMIDE [Suspect]
     Active Substance: LENALIDOMIDE
     Indication: Plasma cell myeloma
     Dosage: FREQUENCY: TAKE 1 CAPSULE (10 MG) BY MOUTH WHOLE WITH WATER AT THE SAME TIME DAILY ON DAYS 1-21 OF E
     Route: 048
     Dates: start: 20230117

REACTIONS (1)
  - Malaise [Recovered/Resolved]
